FAERS Safety Report 7584529-3 (Version None)
Quarter: 2011Q2

REPORT INFORMATION
  Report Type: 
  Country: None (occurrence: None)
  Receive Date: 20110630
  Receipt Date: 20110621
  Transmission Date: 20111010
  Serious: Yes (Disabling)
  Sender: FDA-Public Use
  Company Number: GB-CELGENEUS-167-C5013-11020034

PATIENT
  Sex: Male

DRUGS (4)
  1. PREDNISONE [Suspect]
     Indication: PROSTATE CANCER
     Dosage: 10 MILLIGRAM
     Route: 065
     Dates: start: 20101210
  2. LENALIDOMIDE [Suspect]
     Indication: PROSTATE CANCER
     Route: 048
  3. LENALIDOMIDE [Suspect]
     Route: 048
     Dates: start: 20101210, end: 20101210
  4. DOCETAXEL [Suspect]
     Indication: PROSTATE CANCER
     Dosage: 120 MILLIGRAM
     Route: 065
     Dates: start: 20101210

REACTIONS (1)
  - DYSPNOEA [None]
